FAERS Safety Report 10092454 (Version 1)
Quarter: 2014Q2

REPORT INFORMATION
  Report Type: Spontaneous
  Country: US (occurrence: US)
  Receive Date: 20140421
  Receipt Date: 20140421
  Transmission Date: 20141212
  Serious: No
  Sender: FDA-Public Use
  Company Number: US-SANOFI-AVENTIS-2013SA032049

PATIENT
  Age: 74 Year
  Sex: Female
  Weight: 54.43 kg

DRUGS (5)
  1. ALLEGRA [Suspect]
     Indication: HYPERSENSITIVITY
     Route: 048
     Dates: start: 20130315, end: 20130317
  2. ALLEGRA [Suspect]
     Indication: HEADACHE
     Route: 048
     Dates: start: 20130315, end: 20130317
  3. ALLEGRA [Suspect]
     Indication: HYPERSENSITIVITY
     Dates: start: 20130325, end: 20130328
  4. ALLEGRA [Suspect]
     Indication: HEADACHE
     Dates: start: 20130325, end: 20130328
  5. METOPROLOL [Concomitant]
     Indication: BLOOD PRESSURE

REACTIONS (1)
  - Insomnia [Recovered/Resolved]
